FAERS Safety Report 4513642-X (Version None)
Quarter: 2004Q4

REPORT INFORMATION
  Report Type: 
  Country: None (occurrence: None)
  Receive Date: 20041124
  Receipt Date: 20041108
  Transmission Date: 20050328
  Serious: Yes (Hospitalization)
  Sender: FDA-Public Use
  Company Number: J200404480

PATIENT
  Age: 89 Year
  Sex: Female

DRUGS (6)
  1. MYSLEE ZOLPIDEM TABLET 10MG [Suspect]
     Indication: INSOMNIA
     Dosage: 10MG PO
     Route: 048
     Dates: start: 20030829, end: 20040709
  2. SIGMART (NICORANDIL) [Concomitant]
  3. CALONAL (ACETAMINOPHEN) [Concomitant]
  4. LOXONIN (LOXOPROFEN SODIUM) [Concomitant]
  5. ALESTON (EPINASTINE HYDROCHLORIDE) [Concomitant]
  6. ISOSORBIDE DINITRATE [Concomitant]

REACTIONS (9)
  - BLOOD PRESSURE DECREASED [None]
  - BLOOD PRESSURE INCREASED [None]
  - CEREBRAL INFARCTION [None]
  - DEHYDRATION [None]
  - DELIRIUM [None]
  - DEPRESSED LEVEL OF CONSCIOUSNESS [None]
  - HYPERHIDROSIS [None]
  - TRANSIENT ISCHAEMIC ATTACK [None]
  - VASODILATATION [None]
